FAERS Safety Report 20599790 (Version 2)
Quarter: 2022Q2

REPORT INFORMATION
  Report Type: Spontaneous
  Country: CN (occurrence: CN)
  Receive Date: 20220316
  Receipt Date: 20220412
  Transmission Date: 20220721
  Serious: Yes (Hospitalization)
  Sender: FDA-Public Use
  Company Number: CN-NOVOPROD-898613

PATIENT
  Age: 68 Year
  Sex: Male
  Weight: 80 kg

DRUGS (33)
  1. RYZODEG 70/30 [Suspect]
     Active Substance: INSULIN ASPART\INSULIN DEGLUDEC
     Indication: Type 2 diabetes mellitus
     Dosage: 30 U IN THE MORNING AND 10 U IN THE EVENING
     Route: 058
  2. METFORMIN HYDROCHLORIDE [Concomitant]
     Active Substance: METFORMIN HYDROCHLORIDE
     Indication: Type 2 diabetes mellitus
     Dosage: 1 G, QD
     Route: 048
  3. NIFEDIPINE [Concomitant]
     Active Substance: NIFEDIPINE
     Indication: Hypertension
     Dosage: 20 MG, QD
     Route: 048
     Dates: end: 20220214
  4. ASPIRIN\DIHYDROXYALUMINUM AMINOACETATE\MAGNESIUM CARBONATE [Concomitant]
     Active Substance: ASPIRIN\DIHYDROXYALUMINUM AMINOACETATE\MAGNESIUM CARBONATE
     Indication: Coronary artery disease
     Dosage: 114 MG, QD
     Route: 048
     Dates: start: 20220208, end: 20220214
  5. ROSUVASTATIN CALCIUM [Concomitant]
     Active Substance: ROSUVASTATIN CALCIUM
     Indication: Coronary artery disease
     Dosage: 10 MG, QD
     Route: 048
     Dates: start: 20220208, end: 20220214
  6. ISOSORBIDE MONONITRATE [Concomitant]
     Active Substance: ISOSORBIDE MONONITRATE
     Indication: Coronary artery disease
     Dosage: 20 MG, BID
     Route: 048
     Dates: start: 20220208, end: 20220214
  7. CALCIUM [Concomitant]
     Active Substance: CALCIUM
     Indication: Hypocalcaemia
     Dosage: UNK (BID)
     Route: 048
     Dates: start: 20220208, end: 20220214
  8. NADROPARIN [Concomitant]
     Active Substance: NADROPARIN
     Indication: Thrombosis prophylaxis
     Dosage: 0.4 ML, BID
     Route: 058
     Dates: start: 20220215, end: 20220219
  9. ASPIRIN CALCIUM [Concomitant]
     Active Substance: ASPIRIN CALCIUM
     Indication: Antiplatelet therapy
     Dosage: 100 MG, QD
     Route: 048
     Dates: start: 20220215
  10. CLOPIDOGREL BISULFATE [Concomitant]
     Active Substance: CLOPIDOGREL BISULFATE
     Indication: Antiplatelet therapy
     Dosage: 75 MG, QD
     Route: 065
     Dates: start: 20220215
  11. ATORVASTATIN CALCIUM [Concomitant]
     Active Substance: ATORVASTATIN CALCIUM
     Indication: Lipids abnormal
     Dosage: 20 MG, QD
     Route: 065
     Dates: start: 20220215
  12. METOPROLOL [Concomitant]
     Active Substance: METOPROLOL
     Indication: Myocardial infarction
     Dosage: 24 MG, QD
     Route: 048
     Dates: start: 20220215
  13. SACUBITRIL\VALSARTAN [Concomitant]
     Active Substance: SACUBITRIL\VALSARTAN
     Indication: Hypertension
     Dosage: 25 MG, BID
     Route: 048
     Dates: start: 20220218
  14. NICORANDIL [Concomitant]
     Active Substance: NICORANDIL
     Indication: Myocardial infarction
     Dosage: 5 MG, TID
     Route: 048
     Dates: start: 20220221
  15. RABEPRAZOLE SODIUM [Concomitant]
     Active Substance: RABEPRAZOLE SODIUM
     Indication: Gastrointestinal disorder prophylaxis
     Dosage: 20 MG, QD
     Route: 048
     Dates: start: 20220218, end: 20220221
  16. LACTULOSE [Concomitant]
     Active Substance: LACTULOSE
     Indication: Defaecation disorder
     Dosage: 10 ML, TID
     Route: 048
     Dates: start: 20220218, end: 20220221
  17. NICORANDIL [Concomitant]
     Active Substance: NICORANDIL
     Dosage: 24 MG, TID
     Route: 058
     Dates: start: 20220216, end: 20220219
  18. NICORANDIL [Concomitant]
     Active Substance: NICORANDIL
     Indication: Product used for unknown indication
     Dosage: 24 MG, QID
     Route: 058
     Dates: start: 20220215
  19. NICORANDIL [Concomitant]
     Active Substance: NICORANDIL
     Dosage: 24 MG (FIVE TIMES A DAY)
     Route: 058
     Dates: start: 20220217
  20. NICORANDIL [Concomitant]
     Active Substance: NICORANDIL
     Dosage: 24 MG, QD
     Route: 058
     Dates: start: 20220218
  21. NICORANDIL [Concomitant]
     Active Substance: NICORANDIL
     Dosage: 24 MG, BID
     Route: 058
     Dates: start: 20220220
  22. POTASSIUM CHLORIDE [Concomitant]
     Active Substance: POTASSIUM CHLORIDE
     Dosage: 3 G, QD
     Route: 048
     Dates: start: 20220220, end: 20220220
  23. POTASSIUM CHLORIDE [Concomitant]
     Active Substance: POTASSIUM CHLORIDE
     Dosage: 2 G, QD
     Route: 048
     Dates: start: 20220221
  24. POTASSIUM CHLORIDE [Concomitant]
     Active Substance: POTASSIUM CHLORIDE
     Dosage: 2 G, QD
     Route: 048
     Dates: start: 20220217
  25. POTASSIUM CHLORIDE [Concomitant]
     Active Substance: POTASSIUM CHLORIDE
     Indication: Mineral supplementation
     Dosage: 3 G, QD
     Route: 048
     Dates: start: 20220215, end: 20220216
  26. POTASSIUM CHLORIDE [Concomitant]
     Active Substance: POTASSIUM CHLORIDE
     Indication: Mineral supplementation
     Dosage: 7 ML, QD
     Route: 042
     Dates: start: 20220216, end: 20220217
  27. MAGNESIUM SULFATE [Concomitant]
     Active Substance: MAGNESIUM SULFATE
     Indication: Mineral supplementation
     Dosage: 2.5 G, QD
     Route: 042
     Dates: start: 20220216, end: 20220217
  28. INSULIN NOS [Concomitant]
     Active Substance: INSULIN NOS
     Indication: Diabetes mellitus
     Dosage: 6 IU, QD
     Route: 058
     Dates: start: 20220217
  29. MUSK [Concomitant]
     Indication: Myocardial infarction
     Dosage: 45 MG, TID
     Route: 048
     Dates: start: 20220218, end: 20220221
  30. SODIUM CHLORIDE [Concomitant]
     Active Substance: SODIUM CHLORIDE
     Indication: Infusion
     Dosage: 10 MG, QD
     Route: 042
     Dates: start: 20220219
  31. FUROSEMIDE [Concomitant]
     Active Substance: FUROSEMIDE
     Indication: Polyuria
     Dosage: 20 MG, QD
     Route: 042
     Dates: start: 20220219
  32. SODIUM CHLORIDE [Concomitant]
     Active Substance: SODIUM CHLORIDE
     Indication: Hyponatraemia
     Dosage: 4 G, QD
     Route: 048
     Dates: start: 20220220, end: 20220221
  33. SODIUM CHLORIDE [Concomitant]
     Active Substance: SODIUM CHLORIDE
     Indication: Hypochloraemia

REACTIONS (2)
  - Acute myocardial infarction [Recovered/Resolved]
  - Blood glucose fluctuation [Unknown]

NARRATIVE: CASE EVENT DATE: 20220215
